FAERS Safety Report 25927587 (Version 2)
Quarter: 2025Q4

REPORT INFORMATION
  Report Type: Spontaneous
  Country: JP (occurrence: JP)
  Receive Date: 20251016
  Receipt Date: 20251223
  Transmission Date: 20260118
  Serious: Yes (Hospitalization)
  Sender: ASTELLAS
  Company Number: JP-ASTELLAS-2025-AER-025774

PATIENT
  Age: 66 Year
  Sex: Male
  Weight: 64 kg

DRUGS (8)
  1. PADCEV [Suspect]
     Active Substance: ENFORTUMAB VEDOTIN-EJFV
     Indication: Ureteric cancer
     Dosage: 83.75MG, ONCE A WEEK FOR 2 CONSECUTIVE WEEKS, WITHDRAWAL FOR THE 3RD WEEK
     Route: 042
     Dates: start: 20241113, end: 20250402
  2. PADCEV [Suspect]
     Active Substance: ENFORTUMAB VEDOTIN-EJFV
     Route: 042
     Dates: start: 202508
  3. KEYTRUDA [Suspect]
     Active Substance: PEMBROLIZUMAB
     Indication: Ureteric cancer
     Route: 042
     Dates: start: 20241113, end: 20250416
  4. ELIQUIS [Concomitant]
     Active Substance: APIXABAN
     Indication: Product used for unknown indication
     Route: 048
  5. Famotidine 10mg [Concomitant]
     Indication: Product used for unknown indication
     Route: 048
  6. METHYLCOBALAMIN [Concomitant]
     Active Substance: METHYLCOBALAMIN
     Indication: Product used for unknown indication
     Route: 048
  7. Loxoprofen 60mg [Concomitant]
     Indication: Product used for unknown indication
     Route: 048
  8. EPINASTINE [Concomitant]
     Active Substance: EPINASTINE HYDROCHLORIDE
     Indication: Rash pruritic
     Route: 065
     Dates: start: 20241127

REACTIONS (4)
  - Rash [Recovered/Resolved]
  - Stomatitis [Recovered/Resolved]
  - Rash pruritic [Recovered/Resolved]
  - Blister [Recovered/Resolved]

NARRATIVE: CASE EVENT DATE: 20241127
